FAERS Safety Report 8336037-X (Version None)
Quarter: 2012Q2

REPORT INFORMATION
  Report Type: 
  Country: None (occurrence: None)
  Receive Date: 20120504
  Receipt Date: 20120424
  Transmission Date: 20120825
  Serious: Yes (Other)
  Sender: FDA-Public Use
  Company Number: JP-JNJFOC-20120307561

PATIENT
  Sex: Male
  Weight: 78 kg

DRUGS (16)
  1. SILECE [Suspect]
     Indication: PAIN
     Route: 048
  2. BISOPROLOL FUMARATE [Concomitant]
     Route: 048
     Dates: start: 20110531, end: 20110830
  3. CODEINE PHOSPHATE [Suspect]
     Route: 048
     Dates: start: 20110705, end: 20110711
  4. CODEINE PHOSPHATE [Suspect]
     Route: 048
     Dates: start: 20110628, end: 20110704
  5. OMEPRAZOLE [Concomitant]
     Route: 048
     Dates: start: 20110322, end: 20110816
  6. CODEINE PHOSPHATE [Suspect]
     Route: 048
     Dates: start: 20090901
  7. CODEINE PHOSPHATE [Suspect]
     Route: 048
     Dates: start: 20110614, end: 20110620
  8. PRIMPERAN TAB [Concomitant]
     Route: 048
     Dates: start: 20110507, end: 20110614
  9. CODEINE PHOSPHATE [Suspect]
     Indication: PAIN
     Route: 048
     Dates: start: 20110621, end: 20110627
  10. FENTANYL-100 [Suspect]
     Indication: PAIN
     Route: 062
     Dates: start: 20110614, end: 20110720
  11. DEPAS [Suspect]
     Indication: PAIN
     Route: 048
  12. CELEBREX [Concomitant]
     Indication: PAIN
     Route: 048
     Dates: start: 20101028, end: 20110621
  13. TETRAMIDE [Suspect]
     Indication: PAIN
     Route: 048
     Dates: start: 20110704
  14. PAXIL [Suspect]
     Indication: PAIN
     Route: 048
  15. ANAFRANIL [Suspect]
     Indication: PAIN
     Route: 048
     Dates: start: 20110414, end: 20110714
  16. MEXITIL [Concomitant]
     Indication: PAIN
     Route: 048
     Dates: end: 20111129

REACTIONS (4)
  - SOMNOLENCE [None]
  - CONTUSION [None]
  - ROAD TRAFFIC ACCIDENT [None]
  - DRUG INTOLERANCE [None]
